FAERS Safety Report 13947899 (Version 2)
Quarter: 2017Q4

REPORT INFORMATION
  Report Type: Report from Study
  Country: None (occurrence: AR)
  Receive Date: 20170908
  Receipt Date: 20171013
  Transmission Date: 20180320
  Serious: Yes (Life-Threatening, Other)
  Sender: FDA-Public Use
  Company Number: AR-ABBVIE-15K-007-1347493-00

PATIENT
  Age: 57 Year
  Sex: Male
  Weight: 74 kg

DRUGS (1)
  1. HUMIRA [Suspect]
     Active Substance: ADALIMUMAB
     Indication: PSORIASIS
     Route: 058
     Dates: start: 20130906, end: 2017

REACTIONS (7)
  - Burning sensation [Recovering/Resolving]
  - Helplessness [Recovering/Resolving]
  - Psoriasis [Not Recovered/Not Resolved]
  - Mental disorder [Recovering/Resolving]
  - Pain [Not Recovered/Not Resolved]
  - Suicidal ideation [Unknown]
  - Psoriasis [Recovered/Resolved]

NARRATIVE: CASE EVENT DATE: 20150123
